FAERS Safety Report 23721272 (Version 2)
Quarter: 2024Q2

REPORT INFORMATION
  Report Type: Spontaneous
  Country: CN (occurrence: CN)
  Receive Date: 20240409
  Receipt Date: 20240419
  Transmission Date: 20240716
  Serious: Yes (Hospitalization)
  Sender: FDA-Public Use
  Company Number: CN-002147023-NVSC2024CN068275

PATIENT
  Age: 79 Year
  Sex: Male
  Weight: 57.5 kg

DRUGS (2)
  1. RANIBIZUMAB [Suspect]
     Active Substance: RANIBIZUMAB
     Indication: Macular degeneration
     Route: 050
     Dates: start: 20240306, end: 20240306
  2. RANIBIZUMAB [Suspect]
     Active Substance: RANIBIZUMAB
     Indication: Intra-ocular injection

REACTIONS (15)
  - Chest pain [Recovering/Resolving]
  - Sinus bradycardia [Unknown]
  - Hypotension [Recovering/Resolving]
  - Blood pressure increased [Unknown]
  - Heart rate decreased [Unknown]
  - Defect conduction intraventricular [Unknown]
  - Bundle branch block left [Unknown]
  - Electrocardiogram abnormal [Unknown]
  - Blood potassium decreased [Unknown]
  - Aortic valve disease [Unknown]
  - Mitral valve incompetence [Unknown]
  - Tricuspid valve incompetence [Unknown]
  - Cardiac disorder [Unknown]
  - Malaise [Unknown]
  - Electrocardiogram ST segment elevation [Unknown]

NARRATIVE: CASE EVENT DATE: 20240306
